FAERS Safety Report 9714939 (Version 4)
Quarter: 2014Q3

REPORT INFORMATION
  Report Type: Report from Study
  Country: JP (occurrence: JP)
  Receive Date: 20131126
  Receipt Date: 20140728
  Transmission Date: 20150326
  Serious: Yes (Hospitalization, Other)
  Sender: FDA-Public Use
  Company Number: JP-ABBVIE-09P-087-0588962-00

PATIENT
  Age: 45 Year
  Sex: Male

DRUGS (10)
  1. TRUVADA [Suspect]
     Active Substance: EMTRICITABINE\TENOFOVIR DISOPROXIL FUMARATE
     Indication: HIV INFECTION
     Dosage: ONE TABLET DAILY
     Route: 048
     Dates: start: 20060329
  2. RALTEGRAVIR [Concomitant]
     Active Substance: RALTEGRAVIR
     Indication: PRODUCT USED FOR UNKNOWN INDICATION
     Dates: start: 20120523
  3. NORVIR [Suspect]
     Active Substance: RITONAVIR
     Dosage: 100 MG DAILY
     Route: 048
     Dates: start: 20110420
  4. RETROVIR [Suspect]
     Active Substance: ZIDOVUDINE
     Indication: HIV INFECTION
     Route: 048
     Dates: start: 19960926, end: 19991013
  5. NORVIR [Suspect]
     Active Substance: RITONAVIR
     Dosage: 200 MG DAILY
     Route: 048
     Dates: start: 20050819, end: 20110419
  6. LEXIVA [Suspect]
     Active Substance: FOSAMPRENAVIR CALCIUM
     Indication: HIV INFECTION
     Route: 048
     Dates: start: 20050819
  7. LEXIVA [Suspect]
     Active Substance: FOSAMPRENAVIR CALCIUM
     Route: 048
     Dates: start: 20120401, end: 20120522
  8. NORVIR [Suspect]
     Active Substance: RITONAVIR
     Indication: HIV INFECTION
     Dosage: 100 MG DAILY
     Route: 048
     Dates: start: 20050815, end: 20050818
  9. RETROVIR [Suspect]
     Active Substance: ZIDOVUDINE
     Route: 048
     Dates: start: 20060329
  10. NORVIR [Suspect]
     Active Substance: RITONAVIR
     Dosage: 100 MG DAILY
     Route: 048
     Dates: start: 20120401, end: 20120522

REACTIONS (3)
  - Osteoma [Recovering/Resolving]
  - Diarrhoea [Recovered/Resolved]
  - Hypertriglyceridaemia [Not Recovered/Not Resolved]

NARRATIVE: CASE EVENT DATE: 200805
